FAERS Safety Report 19707323 (Version 1)
Quarter: 2021Q3

REPORT INFORMATION
  Report Type: Spontaneous
  Country: TN (occurrence: TN)
  Receive Date: 20210817
  Receipt Date: 20210817
  Transmission Date: 20211014
  Serious: Yes (Hospitalization, Other)
  Sender: FDA-Public Use
  Company Number: TN-PBT-000009

PATIENT
  Age: 39 Year

DRUGS (5)
  1. PREDNISONE. [Suspect]
     Active Substance: PREDNISONE
     Indication: CYTOMEGALOVIRUS INFECTION
     Route: 065
  2. TACROLIMUS. [Suspect]
     Active Substance: TACROLIMUS
     Indication: PROPHYLAXIS AGAINST TRANSPLANT REJECTION
     Route: 065
  3. PREDNISONE. [Suspect]
     Active Substance: PREDNISONE
     Indication: PROPHYLAXIS AGAINST TRANSPLANT REJECTION
     Route: 065
  4. PREDNISONE. [Suspect]
     Active Substance: PREDNISONE
     Indication: HAEMOPHAGOCYTIC LYMPHOHISTIOCYTOSIS
     Route: 065
  5. AZATHIOPRINE. [Suspect]
     Active Substance: AZATHIOPRINE
     Indication: PROPHYLAXIS AGAINST TRANSPLANT REJECTION
     Route: 065

REACTIONS (4)
  - Exposure during pregnancy [Unknown]
  - Cytomegalovirus infection [Recovered/Resolved]
  - Oligohydramnios [Recovered/Resolved]
  - Haemophagocytic lymphohistiocytosis [Recovered/Resolved]
